FAERS Safety Report 24911413 (Version 5)
Quarter: 2025Q2

REPORT INFORMATION
  Report Type: Spontaneous
  Country: CH (occurrence: CH)
  Receive Date: 20250131
  Receipt Date: 20250430
  Transmission Date: 20250716
  Serious: Yes (Death, Life-Threatening, Hospitalization)
  Sender: BAYER HEALTHCARE PHARMACEUTICALS INC.
  Company Number: CH-BAYER-2024A179045

PATIENT
  Age: 78 Year
  Sex: Female
  Weight: 55 kg

DRUGS (7)
  1. ULTRAVIST [Suspect]
     Active Substance: IOPROMIDE
     Indication: Aneurysm repair
     Dates: start: 20240828, end: 20240828
  2. ULTRAVIST [Suspect]
     Active Substance: IOPROMIDE
     Indication: Aneurysm repair
  3. AMLODIPINE [Concomitant]
     Active Substance: AMLODIPINE BESYLATE
  4. ASPIRIN [Concomitant]
     Active Substance: ASPIRIN
  5. CLOPIDOGREL [Concomitant]
     Active Substance: CLOPIDOGREL BISULFATE
  6. RAMIPRIL [Concomitant]
     Active Substance: RAMIPRIL
  7. KEPPRA [Concomitant]
     Active Substance: LEVETIRACETAM

REACTIONS (4)
  - Fall [Fatal]
  - Contrast encephalopathy [None]
  - Coma [Recovered/Resolved]
  - Coma scale abnormal [Recovered/Resolved]

NARRATIVE: CASE EVENT DATE: 20240828
